FAERS Safety Report 5467097-1 (Version None)
Quarter: 2007Q3

REPORT INFORMATION
  Report Type: 
  Country: None (occurrence: None)
  Receive Date: 20070921
  Receipt Date: 20070921
  Transmission Date: 20080115
  Serious: Yes (Life-Threatening, Hospitalization, Other)
  Sender: FDA-Public Use
  Company Number: None

PATIENT
  Age: 41 Year
  Sex: Male
  Weight: 95.2554 kg

DRUGS (1)
  1. ALLOPURINOL [Suspect]
     Indication: BLOOD URIC ACID INCREASED
     Dosage: 1 A DAY
     Dates: start: 20070608, end: 20070808

REACTIONS (14)
  - BLOOD CREATININE INCREASED [None]
  - CHILLS [None]
  - DRUG HYPERSENSITIVITY [None]
  - EOSINOPHILIA [None]
  - HEPATIC FUNCTION ABNORMAL [None]
  - IMPAIRED WORK ABILITY [None]
  - INFLUENZA LIKE ILLNESS [None]
  - MUSCULOSKELETAL STIFFNESS [None]
  - NIGHT SWEATS [None]
  - ORAL INTAKE REDUCED [None]
  - PAIN [None]
  - PYREXIA [None]
  - VIRAL INFECTION [None]
  - WEIGHT DECREASED [None]
